FAERS Safety Report 18579850 (Version 1)
Quarter: 2020Q4

REPORT INFORMATION
  Report Type: Report from Study
  Country: None (occurrence: ES)
  Receive Date: 20201204
  Receipt Date: 20201204
  Transmission Date: 20210114
  Serious: Yes (Hospitalization)
  Sender: FDA-Public Use
  Company Number: ES-ABBVIE-20K-144-3674747-00

PATIENT
  Age: 4 Month
  Sex: Female
  Weight: 7.12 kg

DRUGS (1)
  1. SYNAGIS [Suspect]
     Active Substance: PALIVIZUMAB
     Indication: ANTIVIRAL PROPHYLAXIS
     Route: 030
     Dates: start: 202009

REACTIONS (1)
  - Bacterial infection [Not Recovered/Not Resolved]

NARRATIVE: CASE EVENT DATE: 20201126
